FAERS Safety Report 18898238 (Version 1)
Quarter: 2021Q1

REPORT INFORMATION
  Report Type: Spontaneous
  Country: US (occurrence: US)
  Receive Date: 20210213
  Receipt Date: 20210213
  Transmission Date: 20210420
  Serious: Yes (Life-Threatening, Hospitalization, Disabling)
  Sender: FDA-Public Use
  Company Number: None

PATIENT
  Age: 37 Year
  Sex: Female
  Weight: 56.25 kg

DRUGS (3)
  1. PROGESTERONE. [Concomitant]
     Active Substance: PROGESTERONE
  2. DEPO?PROVERA [Suspect]
     Active Substance: MEDROXYPROGESTERONE ACETATE
     Indication: CONTRACEPTION
     Dates: start: 20150301, end: 20150301
  3. ARMOUR THYROID [Concomitant]
     Active Substance: THYROID, PORCINE

REACTIONS (25)
  - Panic attack [None]
  - Nightmare [None]
  - Hot flush [None]
  - Libido decreased [None]
  - Obsessive thoughts [None]
  - Anhedonia [None]
  - Quality of life decreased [None]
  - Hyperhidrosis [None]
  - Dyspareunia [None]
  - Productive cough [None]
  - Pain [None]
  - Sleep paralysis [None]
  - Depression [None]
  - Autoimmune thyroiditis [None]
  - Adrenal disorder [None]
  - Suicidal ideation [None]
  - Menorrhagia [None]
  - Muscle spasms [None]
  - Near death experience [None]
  - Vulvovaginal dryness [None]
  - Night sweats [None]
  - Feeling abnormal [None]
  - Emotional disorder [None]
  - Fatigue [None]
  - Post-traumatic stress disorder [None]

NARRATIVE: CASE EVENT DATE: 20150301
